FAERS Safety Report 9259304 (Version 1)
Quarter: 2013Q2

REPORT INFORMATION
  Report Type: Report from Study
  Country: CA (occurrence: CA)
  Receive Date: 20130427
  Receipt Date: 20130427
  Transmission Date: 20140414
  Serious: Yes (Other)
  Sender: FDA-Public Use
  Company Number: CA-ROCHE-1115846

PATIENT
  Age: 57 Year
  Sex: Male
  Weight: 61.2 kg

DRUGS (7)
  1. CAPECITABINE [Suspect]
     Indication: OESOPHAGEAL CARCINOMA
     Route: 048
     Dates: start: 201104
  2. CAPECITABINE [Suspect]
     Route: 048
     Dates: start: 201208
  3. CISPLATIN [Suspect]
     Indication: PRODUCT USED FOR UNKNOWN INDICATION
     Route: 042
  4. TRASTUZUMAB [Suspect]
     Indication: OESOPHAGEAL CARCINOMA
     Route: 042
     Dates: start: 20120907, end: 20121023
  5. LIPITOR [Concomitant]
  6. ONDANSETRON [Concomitant]
  7. HYDROMORPH CONTIN [Concomitant]

REACTIONS (7)
  - Drug effect decreased [Unknown]
  - Drug effect decreased [Unknown]
  - Nausea [Unknown]
  - Vomiting [Unknown]
  - Abdominal pain [Recovered/Resolved]
  - Fatigue [Recovered/Resolved]
  - Disease progression [Unknown]
